FAERS Safety Report 8847917 (Version 1)
Quarter: 2012Q4

REPORT INFORMATION
  Report Type: 
  Country: GB (occurrence: GB)
  Receive Date: 20121018
  Receipt Date: 20121018
  Transmission Date: 20130627
  Serious: Yes (Other)
  Sender: FDA-Public Use
  Company Number: GB-WATSON-2012-17406

PATIENT
  Sex: Female

DRUGS (1)
  1. MIRTAZAPINE (UNKNOWN) [Suspect]
     Indication: DEPRESSION
     Dosage: 15 mg, unknown
     Route: 048
     Dates: start: 20120912, end: 20120914

REACTIONS (6)
  - Angioedema [Recovered/Resolved]
  - Swollen tongue [Recovered/Resolved]
  - Stomatitis [Recovered/Resolved]
  - Malaise [Recovered/Resolved]
  - Oral mucosal erythema [Recovered/Resolved]
  - Blood pressure decreased [Recovered/Resolved]
